FAERS Safety Report 16137436 (Version 1)
Quarter: 2019Q2

REPORT INFORMATION
  Report Type: Spontaneous
  Country: IT (occurrence: IT)
  Receive Date: 20190401
  Receipt Date: 20190401
  Transmission Date: 20190711
  Serious: Yes (Hospitalization)
  Sender: FDA-Public Use
  Company Number: IT-AUROBINDO-AUR-APL-2017-31037

PATIENT

DRUGS (1)
  1. CARBOPLATIN AUROBINDO [Suspect]
     Active Substance: CARBOPLATIN
     Indication: OVARIAN NEOPLASM
     Dosage: 500 MG, CYCLICAL
     Route: 042
     Dates: start: 20170303, end: 20170303

REACTIONS (4)
  - Respiratory fatigue [Recovered/Resolved]
  - Malaise [Recovered/Resolved]
  - Hypoglycaemia [None]
  - Hyperhidrosis [Recovered/Resolved]

NARRATIVE: CASE EVENT DATE: 20170303
